FAERS Safety Report 8429299 (Version 2)
Quarter: 2015Q2

REPORT INFORMATION
  Report Type: Spontaneous
  Country: US (occurrence: US)
  Receive Date: 20120227
  Receipt Date: 20150505
  Transmission Date: 20150821
  Serious: Yes (Other)
  Sender: FDA-Public Use
  Company Number: US-ASTRAZENECA-2012SE11768

PATIENT
  Age: 38 Year
  Sex: Female
  Weight: 71.7 kg

DRUGS (9)
  1. ISORDIL [Concomitant]
     Active Substance: ISOSORBIDE DINITRATE
     Dates: start: 1991
  2. EXEDRIN [Concomitant]
     Indication: MIGRAINE
  3. LISINOPRIL. [Suspect]
     Active Substance: LISINOPRIL
     Indication: HYPERTENSION
     Route: 048
  4. LOMOTIL [Concomitant]
     Active Substance: ATROPINE SULFATE\DIPHENOXYLATE HYDROCHLORIDE
  5. LISINOPRIL. [Suspect]
     Active Substance: LISINOPRIL
     Indication: HYPERTENSION
     Route: 048
     Dates: start: 2014
  6. NEXIUM [Suspect]
     Active Substance: ESOMEPRAZOLE MAGNESIUM
     Indication: ILL-DEFINED DISORDER
     Route: 048
     Dates: start: 2009
  7. NEXIUM [Suspect]
     Active Substance: ESOMEPRAZOLE MAGNESIUM
     Indication: GASTROOESOPHAGEAL REFLUX DISEASE
     Route: 048
     Dates: start: 2009
  8. LOVASTIN [Concomitant]
     Active Substance: LOVASTATIN
     Dosage: 1 TIME AT NIGHT
  9. CHOLESTYRAMINE. [Concomitant]
     Active Substance: CHOLESTYRAMINE
     Route: 048

REACTIONS (5)
  - Hypertension [Unknown]
  - Drug dose omission [Unknown]
  - Feeling abnormal [Unknown]
  - Myocardial infarction [Unknown]
  - Incontinence [Unknown]

NARRATIVE: CASE EVENT DATE: 1991
